FAERS Safety Report 7677142-0 (Version None)
Quarter: 2011Q3

REPORT INFORMATION
  Report Type: 
  Country: None (occurrence: None)
  Receive Date: 20110811
  Receipt Date: 20110808
  Transmission Date: 20111222
  Serious: Yes (Other)
  Sender: FDA-Public Use
  Company Number: US-PFIZER INC-2011181790

PATIENT
  Age: 74 Year
  Sex: Female

DRUGS (3)
  1. ROBITUSSIN MAXIMUM STRENGTH COUGH [Suspect]
     Indication: EMPHYSEMA
     Dosage: 5 ML, AT NIGHT
     Route: 065
     Dates: start: 20110807
  2. ROBITUSSIN DM [Concomitant]
     Dosage: 5ML, NIGHTLY
     Route: 065
  3. ALBUTEROL [Concomitant]
     Indication: EMPHYSEMA
     Dosage: UNK, 6X/DAY
     Route: 055

REACTIONS (3)
  - CHOKING [None]
  - DYSPNOEA [None]
  - EMPHYSEMA [None]
